FAERS Safety Report 12144202 (Version 1)
Quarter: 2016Q1

REPORT INFORMATION
  Report Type: Spontaneous
  Country: US (occurrence: None)
  Receive Date: 20160303
  Receipt Date: 20160303
  Transmission Date: 20160526
  Serious: Yes (Disabling, Other)
  Sender: FDA-Public Use
  Company Number: None

PATIENT
  Age: 50 Year
  Sex: Female
  Weight: 63.5 kg

DRUGS (8)
  1. CELECOXIB. [Suspect]
     Active Substance: CELECOXIB
     Indication: FIBROMYALGIA
     Route: 048
     Dates: start: 20160119, end: 20160220
  2. TOPIRAMATE. [Concomitant]
     Active Substance: TOPIRAMATE
  3. VENLAFAXINE [Concomitant]
     Active Substance: VENLAFAXINE HYDROCHLORIDE
  4. CLONAZEPAM. [Concomitant]
     Active Substance: CLONAZEPAM
  5. VITAMIN D3 [Concomitant]
     Active Substance: CHOLECALCIFEROL
  6. VITAMIN D [Concomitant]
     Active Substance: CHOLECALCIFEROL
  7. QUETIAPINE [Concomitant]
     Active Substance: QUETIAPINE
  8. PRO METH ZINE [Concomitant]

REACTIONS (3)
  - Product substitution issue [None]
  - Abdominal pain upper [None]
  - Diarrhoea [None]
